FAERS Safety Report 7528942-9 (Version None)
Quarter: 2011Q2

REPORT INFORMATION
  Report Type: 
  Country: None (occurrence: None)
  Receive Date: 20110607
  Receipt Date: 20110524
  Transmission Date: 20111010
  Serious: Yes (Hospitalization, Other)
  Sender: FDA-Public Use
  Company Number: PHHY2011NL18572

PATIENT
  Sex: Female

DRUGS (2)
  1. ZOMETA [Suspect]
     Indication: BREAST CANCER METASTATIC
     Dosage: 4 MG/ 5 ML EVERY 28 DAYS
     Dates: start: 20110204
  2. ZOMETA [Suspect]
     Dosage: 4 MG/5 ML EVERY 28 DAYS
     Dates: start: 20110304

REACTIONS (3)
  - BLOOD POTASSIUM DECREASED [None]
  - TRANSIENT ISCHAEMIC ATTACK [None]
  - CONVULSION [None]
